FAERS Safety Report 7493070-8 (Version None)
Quarter: 2011Q2

REPORT INFORMATION
  Report Type: 
  Country: None (occurrence: None)
  Receive Date: 20110520
  Receipt Date: 20110516
  Transmission Date: 20111010
  Serious: No
  Sender: FDA-Public Use
  Company Number: US-PFIZER INC-2011105246

PATIENT
  Sex: Female
  Weight: 90.703 kg

DRUGS (2)
  1. KLONOPIN [Concomitant]
     Indication: ANXIETY
     Dosage: 0.5 MG, AS NEEDED
  2. PRISTIQ [Suspect]
     Indication: ANXIETY
     Dosage: 50 MG, DAILY
     Dates: start: 20090901

REACTIONS (6)
  - CRYING [None]
  - DEPRESSION [None]
  - MEDICATION RESIDUE [None]
  - WEIGHT DECREASED [None]
  - DRUG INEFFECTIVE [None]
  - FREQUENT BOWEL MOVEMENTS [None]
